FAERS Safety Report 11559216 (Version 1)
Quarter: 2015Q3

REPORT INFORMATION
  Report Type: Spontaneous
  Country: DE (occurrence: DE)
  Receive Date: 20150928
  Receipt Date: 20150928
  Transmission Date: 20151125
  Serious: Yes (Hospitalization)
  Sender: FDA-Public Use
  Company Number: DE-MYLANLABS-2015M1032088

PATIENT

DRUGS (5)
  1. ADALIMUMAB RECOMBINANT [Suspect]
     Active Substance: ADALIMUMAB
     Indication: PRODUCT USED FOR UNKNOWN INDICATION
     Dosage: 160 MG, UNK
     Route: 065
  2. ACETAMINOPHEN. [Suspect]
     Active Substance: ACETAMINOPHEN
     Indication: PRODUCT USED FOR UNKNOWN INDICATION
     Dosage: UNK
  3. AZATHIOPRINE. [Suspect]
     Active Substance: AZATHIOPRINE
     Indication: PRODUCT USED FOR UNKNOWN INDICATION
     Dosage: 150 MG, UNK
  4. PREDNISOLONE. [Suspect]
     Active Substance: PREDNISOLONE
     Indication: PRODUCT USED FOR UNKNOWN INDICATION
     Dosage: 25 MG, UNK
  5. COTRIMOXAZOLE [Suspect]
     Active Substance: SULFAMETHOXAZOLE\TRIMETHOPRIM
     Indication: PROPHYLAXIS

REACTIONS (16)
  - Crohn^s disease [Unknown]
  - Alanine aminotransferase increased [Unknown]
  - Hepatocellular injury [None]
  - Abdominal pain [Unknown]
  - Coagulopathy [None]
  - Hepatic necrosis [None]
  - Hepatitis [Unknown]
  - Transaminases increased [Unknown]
  - International normalised ratio increased [Unknown]
  - Pyrexia [Unknown]
  - Pancytopenia [Unknown]
  - Malaise [Unknown]
  - Herpes simplex hepatitis [None]
  - C-reactive protein increased [Unknown]
  - Herpes virus infection [Unknown]
  - Abdominal tenderness [Unknown]
